FAERS Safety Report 13267777 (Version 1)
Quarter: 2017Q1

REPORT INFORMATION
  Report Type: Spontaneous
  Country: US (occurrence: US)
  Receive Date: 20170223
  Receipt Date: 20170223
  Transmission Date: 20170428
  Serious: Yes (Hospitalization, Other)
  Sender: FDA-Public Use
  Company Number: None

PATIENT
  Age: 33 Year
  Sex: Female
  Weight: 81 kg

DRUGS (12)
  1. SHAROBEL [Concomitant]
     Active Substance: NORETHINDRONE
  2. COSENTYX [Suspect]
     Active Substance: SECUKINUMAB
     Indication: ANKYLOSING SPONDYLITIS
     Dosage: ?          QUANTITY:1 INJECTION(S);OTHER FREQUENCY:ONCE WEEKLY;?
     Route: 058
     Dates: start: 20170125, end: 20170215
  3. GABAPENTIN. [Concomitant]
     Active Substance: GABAPENTIN
  4. MAGNESIUM/CALCIUM/VITAMIN D [Concomitant]
  5. DULOXETINE. [Concomitant]
     Active Substance: DULOXETINE
  6. TRAMADOL. [Concomitant]
     Active Substance: TRAMADOL
  7. METHOCARBAMOL. [Concomitant]
     Active Substance: METHOCARBAMOL
  8. OMEPRAZOLE. [Concomitant]
     Active Substance: OMEPRAZOLE
  9. BIPAP [Concomitant]
     Active Substance: DEVICE
  10. NUVIGIL [Concomitant]
     Active Substance: ARMODAFINIL
  11. TYLENOL XR [Concomitant]
  12. IRON [Concomitant]
     Active Substance: IRON

REACTIONS (11)
  - Sinusitis [None]
  - Injection site swelling [None]
  - Injection site pruritus [None]
  - Dizziness [None]
  - Sinus congestion [None]
  - Disorientation [None]
  - Disturbance in attention [None]
  - Heart rate increased [None]
  - Flushing [None]
  - Headache [None]
  - Nausea [None]

NARRATIVE: CASE EVENT DATE: 20170217
